FAERS Safety Report 16381288 (Version 3)
Quarter: 2019Q2

REPORT INFORMATION
  Report Type: Spontaneous
  Country: US (occurrence: US)
  Receive Date: 20190603
  Receipt Date: 20190625
  Transmission Date: 20190711
  Serious: Yes (Hospitalization, Other)
  Sender: FDA-Public Use
  Company Number: US-AMGEN INC.-USASP2019086274

PATIENT

DRUGS (1)
  1. AIMOVIG [Suspect]
     Active Substance: ERENUMAB-AOOE
     Indication: TYPICAL AURA WITHOUT HEADACHE
     Dosage: UNK
     Route: 065

REACTIONS (7)
  - Therapeutic product effect delayed [Unknown]
  - Asthenia [Unknown]
  - Head titubation [Unknown]
  - Blood pressure fluctuation [Unknown]
  - Nausea [Unknown]
  - Dizziness [Unknown]
  - Palpitations [Unknown]

NARRATIVE: CASE EVENT DATE: 20190609
